FAERS Safety Report 6829620-1 (Version None)
Quarter: 2010Q3

REPORT INFORMATION
  Report Type: 
  Country: None (occurrence: None)
  Receive Date: 20100709
  Receipt Date: 20070502
  Transmission Date: 20110219
  Serious: No
  Sender: FDA-Public Use
  Company Number: US-PFIZER INC-2007018237

PATIENT
  Sex: Female
  Weight: 67.13 kg

DRUGS (13)
  1. CHANTIX [Suspect]
     Indication: SMOKING CESSATION THERAPY
     Route: 048
     Dates: start: 20070205
  2. GLIPIZIDE [Concomitant]
  3. ACTOS [Concomitant]
  4. VERAPAMIL [Concomitant]
  5. ZOCOR [Concomitant]
  6. TRICOR [Concomitant]
  7. LEXAPRO [Concomitant]
  8. CAPTOPRIL [Concomitant]
  9. SPIRIVA [Concomitant]
     Route: 055
  10. ALBUTEROL [Concomitant]
     Route: 055
  11. ACETYLSALICYLIC ACID [Concomitant]
  12. MULTI-VITAMINS [Concomitant]
  13. MULTI-VITAMINS [Concomitant]

REACTIONS (3)
  - DECREASED APPETITE [None]
  - DYSGEUSIA [None]
  - PAROSMIA [None]
